FAERS Safety Report 9361109 (Version 1)
Quarter: 2013Q2

REPORT INFORMATION
  Report Type: Spontaneous
  Country: IN (occurrence: IN)
  Receive Date: 20130621
  Receipt Date: 20130621
  Transmission Date: 20140414
  Serious: Yes (Other)
  Sender: FDA-Public Use
  Company Number: IN-ROCHE-1235489

PATIENT
  Age: 62 Year
  Sex: Male
  Weight: 62 kg

DRUGS (5)
  1. BEVACIZUMAB [Suspect]
     Indication: DIABETIC RETINOPATHY
     Route: 031
  2. BEVACIZUMAB [Suspect]
     Indication: OFF LABEL USE
  3. CIPROFLOXACIN [Concomitant]
     Route: 065
  4. IBUPROFEN [Concomitant]
     Route: 065
  5. CEFOTAXIME [Concomitant]
     Route: 065

REACTIONS (6)
  - Blindness [Unknown]
  - Visual acuity reduced [Unknown]
  - Eye haemorrhage [Unknown]
  - Intraocular pressure increased [Unknown]
  - Dizziness [Unknown]
  - Body temperature increased [Unknown]
